FAERS Safety Report 9914759 (Version 1)
Quarter: 2014Q1

REPORT INFORMATION
  Report Type: Report from Study
  Country: US (occurrence: US)
  Receive Date: 20140220
  Receipt Date: 20140220
  Transmission Date: 20141002
  Serious: Yes (Other)
  Sender: FDA-Public Use
  Company Number: PHEH2014US003267

PATIENT
  Sex: Male

DRUGS (1)
  1. EXELON PATCH [Suspect]
     Dosage: 13.3 MG, QD
     Route: 062

REACTIONS (4)
  - Chronic obstructive pulmonary disease [Unknown]
  - Dementia [Unknown]
  - Dysphagia [Recovered/Resolved with Sequelae]
  - Prostatic disorder [Unknown]
